FAERS Safety Report 8582637-1 (Version None)
Quarter: 2012Q3

REPORT INFORMATION
  Report Type: 
  Country: None (occurrence: None)
  Receive Date: 20120809
  Receipt Date: 20120809
  Transmission Date: 20120928
  Serious: Yes (Death)
  Sender: FDA-Public Use
  Company Number: IT-JNJFOC-20120801227

PATIENT
  Sex: Female

DRUGS (4)
  1. PACLITAXEL [Suspect]
     Indication: OVARIAN EPITHELIAL CANCER
     Route: 033
  2. DOXORUBICIN HYDROCHLORIDE [Suspect]
     Indication: OVARIAN EPITHELIAL CANCER
     Route: 033
  3. DOXORUBICIN HYDROCHLORIDE [Suspect]
     Route: 033
  4. CISPLATIN [Suspect]
     Indication: OVARIAN EPITHELIAL CANCER
     Route: 033

REACTIONS (4)
  - INTESTINAL ISCHAEMIA [None]
  - PERITONITIS [None]
  - SEPSIS [None]
  - INCORRECT ROUTE OF DRUG ADMINISTRATION [None]
